FAERS Safety Report 7670039-1 (Version None)
Quarter: 2011Q3

REPORT INFORMATION
  Report Type: 
  Country: None (occurrence: None)
  Receive Date: 20110808
  Receipt Date: 20110610
  Transmission Date: 20111222
  Serious: No
  Sender: FDA-Public Use
  Company Number: US-BAYER-2011-051265

PATIENT
  Sex: Female

DRUGS (1)
  1. NAPROXEN SODIUM AND PSEUDOEPHEDRINE HYDROCHLORIDE [Suspect]
     Indication: NASOPHARYNGITIS

REACTIONS (3)
  - MALAISE [None]
  - FEELING ABNORMAL [None]
  - FEELING JITTERY [None]
